FAERS Safety Report 9579969 (Version 1)
Quarter: 2013Q3

REPORT INFORMATION
  Report Type: Spontaneous
  Country: IT (occurrence: None)
  Receive Date: 20130930
  Receipt Date: 20130930
  Transmission Date: 20140515
  Serious: Yes (Hospitalization)
  Sender: FDA-Public Use
  Company Number: 2013P1019518

PATIENT
  Age: 62 Year
  Sex: Male
  Weight: 132 kg

DRUGS (4)
  1. AMOXICILLIN [Suspect]
     Indication: INFLUENZA LIKE ILLNESS
     Dates: start: 200704
  2. WARFARIN [Concomitant]
  3. AMLODIPINE [Concomitant]
  4. METOPROLOL [Concomitant]

REACTIONS (7)
  - Tubulointerstitial nephritis [None]
  - International normalised ratio increased [None]
  - Renal failure acute [None]
  - Haemoglobin decreased [None]
  - Platelet count decreased [None]
  - Renal tubular disorder [None]
  - Kidney fibrosis [None]
